FAERS Safety Report 7371762-9 (Version None)
Quarter: 2011Q1

REPORT INFORMATION
  Report Type: 
  Country: None (occurrence: None)
  Receive Date: 20110324
  Receipt Date: 20110310
  Transmission Date: 20110831
  Serious: Yes (Other)
  Sender: FDA-Public Use
  Company Number: PHHY2010BR53551

PATIENT
  Sex: Female

DRUGS (1)
  1. RITALIN LA [Suspect]
     Dosage: UNK

REACTIONS (3)
  - SUFFOCATION FEELING [None]
  - DYSPNOEA [None]
  - SWELLING [None]
